APPROVED DRUG PRODUCT: NOLUDAR
Active Ingredient: METHYPRYLON
Strength: 200MG
Dosage Form/Route: TABLET;ORAL
Application: N009660 | Product #004
Applicant: HOFFMANN LA ROCHE INC
Approved: Approved Prior to Jan 1, 1982 | RLD: No | RS: No | Type: DISCN